FAERS Safety Report 11646313 (Version 2)
Quarter: 2015Q4

REPORT INFORMATION
  Report Type: Spontaneous
  Country: US (occurrence: US)
  Receive Date: 20151020
  Receipt Date: 20151217
  Transmission Date: 20160304
  Serious: Yes (Other)
  Sender: FDA-Public Use
  Company Number: US-ROCHE-1620605

PATIENT
  Sex: Male

DRUGS (16)
  1. NOVOLIN [Concomitant]
     Active Substance: INSULIN HUMAN
  2. ASPIRIN. [Concomitant]
     Active Substance: ASPIRIN
  3. ADVIL [Concomitant]
     Active Substance: IBUPROFEN
  4. LOSARTAN. [Concomitant]
     Active Substance: LOSARTAN
  5. TERAZOSIN [Concomitant]
     Active Substance: TERAZOSIN\TERAZOSIN HYDROCHLORIDE
  6. WARFARIN [Concomitant]
     Active Substance: WARFARIN
  7. ATROVENT [Concomitant]
     Active Substance: IPRATROPIUM BROMIDE
  8. ATORVASTATIN [Concomitant]
     Active Substance: ATORVASTATIN
  9. ISOSORBIDE MONONITRATE. [Concomitant]
     Active Substance: ISOSORBIDE MONONITRATE
  10. PANTOPRAZOLE [Concomitant]
     Active Substance: PANTOPRAZOLE SODIUM
  11. FISH OIL [Concomitant]
     Active Substance: FISH OIL
  12. AMLODIPINE BESYLATE. [Concomitant]
     Active Substance: AMLODIPINE BESYLATE
  13. CARVEDILOL. [Concomitant]
     Active Substance: CARVEDILOL
  14. ESBRIET [Suspect]
     Active Substance: PIRFENIDONE
     Indication: IDIOPATHIC PULMONARY FIBROSIS
     Route: 048
     Dates: start: 20150213
  15. VITAMIN D3 [Concomitant]
     Active Substance: CHOLECALCIFEROL
  16. FUROSEMIDE. [Concomitant]
     Active Substance: FUROSEMIDE

REACTIONS (2)
  - Dizziness [Unknown]
  - Bladder cancer [Unknown]
